FAERS Safety Report 11215586 (Version 1)
Quarter: 2015Q2

REPORT INFORMATION
  Report Type: Spontaneous
  Country: US (occurrence: None)
  Receive Date: 20150623
  Receipt Date: 20150623
  Transmission Date: 20150821
  Serious: Yes (Other)
  Sender: FDA-Public Use
  Company Number: None

PATIENT
  Age: 18 Year
  Sex: Female

DRUGS (1)
  1. KALYDECO [Suspect]
     Active Substance: IVACAFTOR
     Indication: CYSTIC FIBROSIS
     Dosage: 1 TABLET, BID, PO
     Route: 048
     Dates: start: 20150501

REACTIONS (2)
  - Urinary tract infection [None]
  - Drug dose omission [None]

NARRATIVE: CASE EVENT DATE: 201505
